FAERS Safety Report 5273859-6 (Version None)
Quarter: 2007Q1

REPORT INFORMATION
  Report Type: 
  Country: None (occurrence: None)
  Receive Date: 20070323
  Receipt Date: 20070313
  Transmission Date: 20070707
  Serious: Yes (Disabling)
  Sender: FDA-Public Use
  Company Number: FR-ROCHE-486913

PATIENT
  Age: 57 Year
  Sex: Female

DRUGS (2)
  1. CELLCEPT [Suspect]
     Indication: NEUROPSYCHIATRIC LUPUS
     Route: 065
  2. CORTICOTHERAPY [Concomitant]
     Indication: NEUROPSYCHIATRIC LUPUS

REACTIONS (1)
  - PROGRESSIVE MULTIFOCAL LEUKOENCEPHALOPATHY [None]
